FAERS Safety Report 8250295-1 (Version None)
Quarter: 2012Q2

REPORT INFORMATION
  Report Type: 
  Country: None (occurrence: None)
  Receive Date: 20120402
  Receipt Date: 20120323
  Transmission Date: 20120825
  Serious: Yes (Hospitalization)
  Sender: FDA-Public Use
  Company Number: US-ACTELION-A-NJ2012-60546

PATIENT

DRUGS (7)
  1. PERCOLONE [Concomitant]
  2. SOMA [Concomitant]
  3. EPOPROSTENOL SODIUM [Suspect]
     Indication: PULMONARY ARTERIAL HYPERTENSION
     Dosage: 14 NG/KG, PER MIN
     Route: 041
     Dates: start: 20100727
  4. ASPIRIN [Concomitant]
  5. PROTONIX [Concomitant]
  6. POTASSIUM CHLORIDE [Concomitant]
  7. LACTULOSE [Concomitant]

REACTIONS (4)
  - PUBIS FRACTURE [None]
  - FALL [None]
  - PULMONARY ARTERIAL HYPERTENSION [None]
  - CONDITION AGGRAVATED [None]
